FAERS Safety Report 25037758 (Version 1)
Quarter: 2025Q1

REPORT INFORMATION
  Report Type: Spontaneous
  Country: US (occurrence: US)
  Receive Date: 20250304
  Receipt Date: 20250304
  Transmission Date: 20250408
  Serious: Yes (Life-Threatening)
  Sender: Meaningful Beauty
  Company Number: 2601008

PATIENT
  Age: 52 Year
  Sex: Female

DRUGS (7)
  1. AVOBENZONE\HOMOSALATE\OCTISALATE\OXYBENZONE [Suspect]
     Active Substance: AVOBENZONE\HOMOSALATE\OCTISALATE\OXYBENZONE
  2. MEANINGFUL BEAUTY CINDY CRAWFORD SKIN BRIGHTENING DECOLLETE AND NECK T [Suspect]
     Active Substance: AVOBENZONE\OCTINOXATE\OCTISALATE\OXYBENZONE
  3. MEANINGFUL BEAUTY EYE LIFTING CREAM [Suspect]
     Active Substance: MUSKMELON
  4. COSMETICS [Suspect]
     Active Substance: COSMETICS
  5. MEANINGFUL BEAUTY ANTI-AGING NIGHT CREME CREAM [Suspect]
     Active Substance: MUSKMELON
  6. COSMETICS [Suspect]
     Active Substance: COSMETICS
  7. COSMETICS [Suspect]
     Active Substance: COSMETICS

REACTIONS (1)
  - Hypersensitivity [Recovered/Resolved]
